FAERS Safety Report 4478708-1 (Version None)
Quarter: 2004Q3

REPORT INFORMATION
  Report Type: 
  Country: None (occurrence: None)
  Receive Date: 20040923
  Receipt Date: 20040701
  Transmission Date: 20050211
  Serious: No
  Sender: FDA-Public Use
  Company Number: USA040568406

PATIENT
  Age: 71 Year
  Sex: Female
  Weight: 64 kg

DRUGS (15)
  1. FORTEO [Suspect]
     Indication: OSTEOPOROSIS
     Dosage: 20 UG/1 AT BEDTIME
     Dates: start: 20040516
  2. PLAVIX [Concomitant]
  3. MIACALCIN [Concomitant]
  4. DIOVAN [Concomitant]
  5. PREMARIN [Concomitant]
  6. OCUVITE [Concomitant]
  7. CALCIUM [Concomitant]
  8. SYNTHROID [Concomitant]
  9. CELEBREX [Concomitant]
  10. COMPAZINE [Concomitant]
  11. VICODIN [Concomitant]
  12. FIORICET [Concomitant]
  13. LIBRAX [Concomitant]
  14. AMITRIPTYLINE HCL [Concomitant]
  15. LEVISIN [Concomitant]

REACTIONS (5)
  - BURNING SENSATION [None]
  - CONTUSION [None]
  - INJECTION SITE HAEMORRHAGE [None]
  - MUSCLE CRAMP [None]
  - PAIN IN EXTREMITY [None]
